FAERS Safety Report 4839241-8 (Version None)
Quarter: 2005Q4

REPORT INFORMATION
  Report Type: 
  Country: None (occurrence: None)
  Receive Date: 20051129
  Receipt Date: 20041005
  Transmission Date: 20060501
  Serious: No
  Sender: FDA-Public Use
  Company Number: US-GLAXOSMITHKLINE-A0529317A

PATIENT
  Age: 69 Year
  Sex: Female

DRUGS (3)
  1. WELLBUTRIN SR [Suspect]
     Indication: DRUG USE FOR UNKNOWN INDICATION
     Dosage: 150MG IN THE MORNING
     Route: 048
  2. ADDERALL 10 [Concomitant]
     Dosage: 5MG PER DAY
     Route: 048
  3. ESTRACE [Concomitant]
     Dosage: 1MG PER DAY
     Route: 065

REACTIONS (2)
  - NERVOUSNESS [None]
  - TINNITUS [None]
